FAERS Safety Report 4955825-0 (Version None)
Quarter: 2006Q1

REPORT INFORMATION
  Report Type: 
  Country: None (occurrence: None)
  Receive Date: 20060327
  Receipt Date: 20060327
  Transmission Date: 20060701
  Serious: Yes (Hospitalization)
  Sender: FDA-Public Use
  Company Number: None

PATIENT
  Age: 70 Year
  Sex: Male
  Weight: 75.2971 kg

DRUGS (22)
  1. DIGOXIN [Suspect]
     Indication: CARDIAC FAILURE CONGESTIVE
     Dosage: 0.125 MG DAILY PO
     Route: 048
     Dates: start: 20040603, end: 20060319
  2. LISINOPRIL [Concomitant]
  3. MAG OXIDE [Concomitant]
  4. OMEPRAZOLE [Concomitant]
  5. ROSIGLITAZONE [Concomitant]
  6. TAMULOSIN [Concomitant]
  7. FINASTERIDE [Concomitant]
  8. SERTRALINE [Concomitant]
  9. PRAVASTATIN [Concomitant]
  10. ASPIRIN [Concomitant]
  11. COMBIVENT [Concomitant]
  12. INSULIN ASPART SSI [Concomitant]
  13. CARVEDIOLOL [Concomitant]
  14. ALLOPURINOL [Concomitant]
  15. BUMETANIDE [Concomitant]
  16. CYCLOSPORINE [Concomitant]
  17. CYCLOSPOINE [Concomitant]
  18. DIGOXIN [Concomitant]
  19. DILTIAZEM [Concomitant]
  20. FESO4 [Concomitant]
  21. LANTUS [Concomitant]
  22. MYCOPHENOLATE MOFITIL [Concomitant]

REACTIONS (7)
  - ABDOMINAL PAIN [None]
  - ASTHENIA [None]
  - COLOUR BLINDNESS [None]
  - NAUSEA [None]
  - VISUAL DISTURBANCE [None]
  - VOMITING [None]
  - WEIGHT DECREASED [None]
